FAERS Safety Report 19440050 (Version 4)
Quarter: 2021Q3

REPORT INFORMATION
  Report Type: Spontaneous
  Country: CA (occurrence: CA)
  Receive Date: 20210620
  Receipt Date: 20210722
  Transmission Date: 20211014
  Serious: Yes (Other)
  Sender: FDA-Public Use
  Company Number: CA-CELLTRION INC.-2021CA008371

PATIENT

DRUGS (4)
  1. INFLECTRA [Suspect]
     Active Substance: INFLIXIMAB-DYYB
     Dosage: 400 MG, AT 0, 2, 6 WEEKS, THEN EVERY 8 WEEKS
     Route: 042
     Dates: start: 20210517
  2. INFLECTRA [Suspect]
     Active Substance: INFLIXIMAB-DYYB
     Indication: COLITIS ULCERATIVE
     Dosage: 400 MG, AT 0, 2, 6 WEEKS, THEN EVERY 8 WEEKS
     Route: 042
     Dates: start: 20210416
  3. INFLECTRA [Suspect]
     Active Substance: INFLIXIMAB-DYYB
     Dosage: 400 MG, AT 0, 2, 6 WEEKS, THEN EVERY 8 WEEKS
     Route: 042
     Dates: start: 20210601
  4. MEZAVANT [Concomitant]
     Active Substance: MESALAMINE
     Dosage: 4.8 G, DAILY
     Route: 048

REACTIONS (19)
  - Paraesthesia oral [Unknown]
  - Anorectal discomfort [Recovering/Resolving]
  - Anxiety [Unknown]
  - Oral pruritus [Unknown]
  - Infusion related reaction [Recovered/Resolved]
  - Inflammation [Not Recovered/Not Resolved]
  - Body temperature fluctuation [Unknown]
  - Urticaria [Unknown]
  - Heart rate increased [Unknown]
  - Inappropriate schedule of product administration [Unknown]
  - Skin discolouration [Unknown]
  - Pruritus [Unknown]
  - Lip erythema [Unknown]
  - Blood pressure fluctuation [Unknown]
  - Hypersensitivity [Unknown]
  - Haemorrhage [Unknown]
  - Defaecation urgency [Unknown]
  - Platelet count increased [Unknown]
  - Acne [Unknown]

NARRATIVE: CASE EVENT DATE: 20210517
